FAERS Safety Report 4616153-6 (Version None)
Quarter: 2005Q1

REPORT INFORMATION
  Report Type: 
  Country: None (occurrence: None)
  Receive Date: 20050323
  Receipt Date: 20050131
  Transmission Date: 20050727
  Serious: Yes (Hospitalization)
  Sender: FDA-Public Use
  Company Number: DE-BRISTOL-MYERS SQUIBB COMPANY-12844205

PATIENT
  Age: 38 Year
  Sex: Female
  Weight: 124 kg

DRUGS (2)
  1. ABILIFY [Suspect]
     Indication: SCHIZOPHRENIA, PARANOID TYPE
     Route: 048
     Dates: start: 20040818, end: 20050117
  2. CONCOR [Concomitant]

REACTIONS (1)
  - ACARODERMATITIS [None]
